FAERS Safety Report 15990644 (Version 1)
Quarter: 2019Q1

REPORT INFORMATION
  Report Type: Spontaneous
  Country: US (occurrence: US)
  Receive Date: 20190125
  Receipt Date: 20190125
  Transmission Date: 20190418
  Serious: No
  Sender: FDA-Public Use
  Company Number: None

PATIENT
  Age: 33 Year
  Sex: Female

DRUGS (1)
  1. HYDROXYPROGEST++ CAPR SDV 250MG/ML [Suspect]
     Active Substance: HYDROXYPROGESTERONE CAPROATE
     Indication: PREMATURE LABOUR
     Route: 041
     Dates: start: 201812

REACTIONS (1)
  - Depression [None]

NARRATIVE: CASE EVENT DATE: 201812
